FAERS Safety Report 17815852 (Version 1)
Quarter: 2020Q2

REPORT INFORMATION
  Report Type: Spontaneous
  Country: CH (occurrence: CH)
  Receive Date: 20200522
  Receipt Date: 20200522
  Transmission Date: 20200714
  Serious: Yes (Death, Hospitalization, Other)
  Sender: FDA-Public Use
  Company Number: CH-STRIDES ARCOLAB LIMITED-2020SP005902

PATIENT
  Age: 59 Year
  Sex: Female

DRUGS (4)
  1. MYCOPHENOLATE MOFETIL. [Suspect]
     Active Substance: MYCOPHENOLATE MOFETIL
     Indication: RENAL TRANSPLANT
     Dosage: UNK
     Route: 065
  2. TACROLIMUS. [Suspect]
     Active Substance: TACROLIMUS
     Indication: RENAL TRANSPLANT
     Dosage: UNK
     Route: 065
  3. MYCOPHENOLATE MOFETIL. [Suspect]
     Active Substance: MYCOPHENOLATE MOFETIL
     Indication: PANCREAS TRANSPLANT
  4. TACROLIMUS. [Suspect]
     Active Substance: TACROLIMUS
     Indication: PANCREAS TRANSPLANT

REACTIONS (15)
  - Pneumonia [Unknown]
  - Pleural effusion [Unknown]
  - Hypercoagulation [Unknown]
  - Cardiopulmonary failure [Unknown]
  - Multiple organ dysfunction syndrome [Fatal]
  - Gastrointestinal tract adenoma [Unknown]
  - Septic shock [Unknown]
  - Metastases to lung [Unknown]
  - Intussusception [Unknown]
  - Lung adenocarcinoma [Unknown]
  - Off label use [Unknown]
  - Intestinal obstruction [Unknown]
  - Arterial thrombosis [Unknown]
  - Lymphangiosis carcinomatosa [Unknown]
  - Pancreatic necrosis [Unknown]
